FAERS Safety Report 23768214 (Version 3)
Quarter: 2024Q2

REPORT INFORMATION
  Report Type: Spontaneous
  Country: JP (occurrence: None)
  Receive Date: 20240422
  Receipt Date: 20240521
  Transmission Date: 20240716
  Serious: Yes (Death)
  Sender: FDA-Public Use
  Company Number: 2024A094231

PATIENT
  Age: 34003 Day
  Sex: Female
  Weight: 40 kg

DRUGS (10)
  1. ONDEXXYA [Suspect]
     Active Substance: ANDEXANET ALFA
     Indication: Cerebral haemorrhage
     Dosage: DOSE UNKNOWN 880.0MG UNKNOWN
     Route: 042
     Dates: start: 20240320, end: 20240320
  2. ONDEXXYA [Suspect]
     Active Substance: ANDEXANET ALFA
     Indication: Cerebral haemorrhage
     Dosage: DOSE UNKNOWN 880.0MG UNKNOWN
     Route: 042
     Dates: start: 20240320, end: 20240320
  3. UNSPECIFIED INGREDIENT [Concomitant]
     Active Substance: UNSPECIFIED INGREDIENT
     Dosage: DOSE UNKNOWN
  4. NICARDIPINE HYDROCHLORIDE [Concomitant]
     Active Substance: NICARDIPINE HYDROCHLORIDE
     Indication: Blood pressure increased
     Route: 041
     Dates: start: 20240320, end: 20240320
  5. GASTER [Concomitant]
     Active Substance: FAMOTIDINE
     Indication: Ulcer
     Route: 042
     Dates: start: 20240320, end: 20240321
  6. LEVETIRACETAM [Concomitant]
     Active Substance: LEVETIRACETAM
     Indication: Epilepsy
     Route: 041
     Dates: start: 20240320, end: 20240321
  7. CARBAZOCHROME SODIUM SULFONATE [Concomitant]
     Active Substance: CARBAZOCHROME SODIUM SULFONATE
     Indication: Epilepsy
     Route: 042
     Dates: start: 20240320, end: 20240325
  8. TRANEXAMIC ACID [Concomitant]
     Active Substance: TRANEXAMIC ACID
     Indication: Epilepsy
     Route: 042
     Dates: start: 20240320, end: 20240325
  9. CALCIUM CHLORIDE\POTASSIUM CHLORIDE\SODIUM ACETATE\SODIUM CHLORIDE [Concomitant]
     Active Substance: CALCIUM CHLORIDE\POTASSIUM CHLORIDE\SODIUM ACETATE\SODIUM CHLORIDE
     Indication: Epilepsy
     Route: 041
     Dates: start: 20240320, end: 20240325
  10. SOLITA-T NO.1 [Concomitant]
     Indication: Epilepsy
     Route: 042
     Dates: start: 20240320, end: 20240323

REACTIONS (1)
  - Embolism [Fatal]

NARRATIVE: CASE EVENT DATE: 20240321
